FAERS Safety Report 8878177 (Version 1)
Quarter: 2012Q4

REPORT INFORMATION
  Report Type: 
  Country: US (occurrence: US)
  Receive Date: 20121025
  Receipt Date: 20121025
  Transmission Date: 20130627
  Serious: No
  Sender: FDA-Public Use
  Company Number: US-AMGEN-USASP2012021162

PATIENT
  Age: 61 Year
  Sex: Female

DRUGS (5)
  1. ENBREL [Suspect]
     Indication: PRODUCT USED FOR UNKNOWN INDICATION
     Dosage: 50 mg, qwk
     Route: 058
  2. LIPITOR [Concomitant]
     Dosage: 10 mg, UNK
  3. LISINOPRIL [Concomitant]
     Dosage: 10 mg, UNK
     Route: 048
  4. METFORMIN [Concomitant]
     Dosage: 1000 mg, UNK
     Route: 048
  5. ACIPHEX [Concomitant]
     Dosage: 20 mg, UNK
     Route: 048

REACTIONS (1)
  - Sinusitis [Unknown]
